FAERS Safety Report 7580922-3 (Version None)
Quarter: 2011Q2

REPORT INFORMATION
  Report Type: 
  Country: None (occurrence: None)
  Receive Date: 20110629
  Receipt Date: 20110622
  Transmission Date: 20111010
  Serious: Yes (Disabling)
  Sender: FDA-Public Use
  Company Number: US-MERCK-1105USA02523

PATIENT
  Age: 24 Month
  Sex: Male
  Weight: 37 kg

DRUGS (2)
  1. SINGULAIR [Suspect]
     Indication: ASTHMA
     Route: 048
     Dates: start: 20020101, end: 20100101
  2. SINGULAIR [Suspect]
     Indication: RHINITIS ALLERGIC
     Route: 048
     Dates: start: 20020101, end: 20100101

REACTIONS (3)
  - MYALGIA [None]
  - MYOPATHY [None]
  - MUSCULAR DYSTROPHY [None]
